FAERS Safety Report 10077041 (Version 1)
Quarter: 2014Q2

REPORT INFORMATION
  Report Type: Spontaneous
  Country: GB (occurrence: GB)
  Receive Date: 20140414
  Receipt Date: 20140414
  Transmission Date: 20141212
  Serious: Yes (Other)
  Sender: FDA-Public Use
  Company Number: GB-WATSON-2014-07073

PATIENT
  Age: 21 Year
  Sex: Male

DRUGS (2)
  1. CITALOPRAM (UNKNOWN) [Suspect]
     Indication: DEPRESSION
     Dosage: 10 MG, DAILY
     Route: 048
  2. CITALOPRAM (UNKNOWN) [Suspect]
     Dosage: 20 MG, DAILY
     Route: 048
     Dates: start: 201311, end: 201312

REACTIONS (2)
  - Urinary bladder haemorrhage [Unknown]
  - Bladder irritation [Unknown]
